FAERS Safety Report 4901158-8 (Version None)
Quarter: 2006Q1

REPORT INFORMATION
  Report Type: 
  Country: None (occurrence: None)
  Receive Date: 20060201
  Receipt Date: 20060113
  Transmission Date: 20060701
  Serious: Yes (Death, Hospitalization, Other)
  Sender: FDA-Public Use
  Company Number: US200512003456

PATIENT
  Age: 83 Year
  Sex: Male

DRUGS (3)
  1. ALIMTA [Suspect]
     Indication: NON-SMALL CELL LUNG CANCER
     Dosage: 900 MG, INTRAVENOUS
     Route: 042
     Dates: start: 20050719, end: 20050719
  2. ALIMTA [Suspect]
     Indication: NON-SMALL CELL LUNG CANCER
     Dosage: 900 MG
     Dates: start: 20051129, end: 20051129
  3. VITAMIN B12 [Concomitant]

REACTIONS (7)
  - ANAEMIA [None]
  - DIARRHOEA [None]
  - MALIGNANT NEOPLASM PROGRESSION [None]
  - NEUTROPENIA [None]
  - ORAL INTAKE REDUCED [None]
  - SPEECH DISORDER [None]
  - WEIGHT DECREASED [None]
